FAERS Safety Report 21401378 (Version 1)
Quarter: 2022Q4

REPORT INFORMATION
  Report Type: Report from Study
  Country: US (occurrence: US)
  Receive Date: 20221003
  Receipt Date: 20221003
  Transmission Date: 20230113
  Serious: No
  Sender: FDA-Public Use
  Company Number: US-ABBVIE-22K-163-4421261-00

PATIENT
  Sex: Female

DRUGS (4)
  1. HUMIRA [Suspect]
     Active Substance: ADALIMUMAB
     Indication: Hidradenitis
     Dosage: DAY1
     Route: 058
     Dates: start: 20220121, end: 20220121
  2. HUMIRA [Suspect]
     Active Substance: ADALIMUMAB
     Dosage: DAY 15
     Route: 058
     Dates: start: 20220205, end: 20220205
  3. HUMIRA [Suspect]
     Active Substance: ADALIMUMAB
     Route: 058
     Dates: start: 2022, end: 2022
  4. HUMIRA [Suspect]
     Active Substance: ADALIMUMAB

REACTIONS (4)
  - Pruritus [Not Recovered/Not Resolved]
  - Loss of personal independence in daily activities [Unknown]
  - Therapeutic product effect decreased [Unknown]
  - Pain of skin [Not Recovered/Not Resolved]

NARRATIVE: CASE EVENT DATE: 20220101
